APPROVED DRUG PRODUCT: ARGATROBAN
Active Ingredient: ARGATROBAN
Strength: 250MG/2.5ML (100MG/ML)
Dosage Form/Route: INJECTABLE;INJECTION
Application: N201811 | Product #001
Applicant: FRESENIUS KABI USA LLC
Approved: Mar 23, 2015 | RLD: No | RS: No | Type: DISCN